FAERS Safety Report 14744972 (Version 2)
Quarter: 2019Q1

REPORT INFORMATION
  Report Type: Spontaneous
  Country: US (occurrence: US)
  Receive Date: 20180411
  Receipt Date: 20190103
  Transmission Date: 20190417
  Serious: Yes (Hospitalization)
  Sender: FDA-Public Use
  Company Number: US-PFIZER INC-2018144757

PATIENT
  Age: 83 Year
  Sex: Female
  Weight: 55.33 kg

DRUGS (11)
  1. TYLENOL [Concomitant]
     Active Substance: ACETAMINOPHEN
     Dosage: UNK
  2. SERTRALINE HCL [Concomitant]
     Active Substance: SERTRALINE HYDROCHLORIDE
     Dosage: 50 MG, 1X/DAY
  3. CALCIUM [Concomitant]
     Active Substance: CALCIUM
  4. XGEVA [Concomitant]
     Active Substance: DENOSUMAB
     Dosage: UNK (ONCE EVERY 2 MONTHS)
  5. TRAMADOL. [Concomitant]
     Active Substance: TRAMADOL
     Indication: PAIN
     Dosage: 50 MG, AS NEEDED (ONE AND A HALF AS NEEDED)
  6. LATANOPROST. [Concomitant]
     Active Substance: LATANOPROST
     Dosage: UNK (FOR EYES)
  7. TRIAMTEREEN/HYDROCHLOORTHIAZIDE [Concomitant]
     Active Substance: HYDROCHLOROTHIAZIDE\TRIAMTERENE
     Dosage: UNK [TRIAMTERENE: 37.5/HYDROCHLOROTHIAZIDE: 25 MG]
  8. IBRANCE [Suspect]
     Active Substance: PALBOCICLIB
     Indication: METASTATIC NEOPLASM
     Dosage: 100 MG, CYCLIC (1 CAP PO DAILY WITH FOOD FOR 21 DAYS THEN 7 DAYS OFF)
     Route: 048
  9. LETROZOLE. [Concomitant]
     Active Substance: LETROZOLE
     Dosage: 2.5 MG, UNK
  10. GABAPENTIN. [Concomitant]
     Active Substance: GABAPENTIN
     Dosage: 100 MG, 1X/DAY
  11. ATENOLOL. [Concomitant]
     Active Substance: ATENOLOL
     Dosage: 5 MG, UNK

REACTIONS (1)
  - Pneumonia [Unknown]
